FAERS Safety Report 5167709-6 (Version None)
Quarter: 2006Q4

REPORT INFORMATION
  Report Type: 
  Country: None (occurrence: None)
  Receive Date: 20061208
  Receipt Date: 20061127
  Transmission Date: 20070319
  Serious: Yes (Other)
  Sender: FDA-Public Use
  Company Number: PHBS2006BE18453

PATIENT
  Age: 78 Year
  Sex: Male

DRUGS (8)
  1. ZOMETA [Suspect]
     Indication: METASTASES TO BONE
     Dosage: 4 MG, EVERY 4 WEEKS
     Route: 042
     Dates: start: 20040701, end: 20050301
  2. RADIOTHERAPY [Concomitant]
     Dosage: 30 GY AT THE LI VERTEBRA
     Route: 065
     Dates: start: 20040701
  3. DECAPEPTYL [Concomitant]
     Dosage: 3.75 MG, EVERY 28 DAYS
     Route: 065
     Dates: start: 19990101
  4. ESTRAMUSTINE [Concomitant]
     Dosage: 140 MG, TID
     Route: 065
     Dates: start: 20040701
  5. ISOTEN [Concomitant]
     Indication: HYPERTENSION
     Dosage: 5 MG, QD
     Route: 065
     Dates: start: 20020101
  6. PLAVIX [Concomitant]
     Indication: CEREBROVASCULAR ACCIDENT
     Dosage: UNK, QD
     Route: 065
     Dates: start: 20020101
  7. ZOCOR [Concomitant]
     Dosage: 40 MG, QD
     Route: 065
     Dates: start: 20020101
  8. PANTOZOL [Concomitant]
     Dosage: 20 MG, QD
     Route: 065

REACTIONS (3)
  - OSTEONECROSIS [None]
  - PRIMARY SEQUESTRUM [None]
  - WOUND DEBRIDEMENT [None]
